FAERS Safety Report 8363111-4 (Version None)
Quarter: 2012Q2

REPORT INFORMATION
  Report Type: 
  Country: None (occurrence: None)
  Receive Date: 20120514
  Receipt Date: 20120514
  Transmission Date: 20120825
  Serious: Yes (Death)
  Sender: FDA-Public Use
  Company Number: None

PATIENT
  Sex: Male
  Weight: 82.5547 kg

DRUGS (2)
  1. OLANZAPINE [Suspect]
     Dates: start: 20080124, end: 20120430
  2. ZYPREXA [Suspect]
     Dates: start: 20080124, end: 20120430

REACTIONS (1)
  - SUDDEN CARDIAC DEATH [None]
